FAERS Safety Report 5139349-6 (Version None)
Quarter: 2006Q4

REPORT INFORMATION
  Report Type: 
  Country: None (occurrence: None)
  Receive Date: 20061024
  Receipt Date: 20061017
  Transmission Date: 20070319
  Serious: Yes (Hospitalization)
  Sender: FDA-Public Use
  Company Number: 2006BI009772

PATIENT
  Age: 50 Year
  Sex: Female

DRUGS (2)
  1. AVONEX [Suspect]
     Indication: MULTIPLE SCLEROSIS
     Dosage: 30 UG, QW; IM
     Route: 042
     Dates: start: 20000301, end: 20030101
  2. AVONEX [Suspect]
     Indication: MULTIPLE SCLEROSIS
     Dosage: 30 UG, QW; IM
     Route: 042
     Dates: start: 20030101, end: 20051215

REACTIONS (6)
  - ARTHROPATHY [None]
  - FALL [None]
  - IMPAIRED HEALING [None]
  - LOWER LIMB FRACTURE [None]
  - SURGICAL PROCEDURE REPEATED [None]
  - THERAPY NON-RESPONDER [None]
